FAERS Safety Report 9343615 (Version 1)
Quarter: 2013Q2

REPORT INFORMATION
  Report Type: Spontaneous
  Country: GB (occurrence: None)
  Receive Date: 20130610
  Receipt Date: 20130610
  Transmission Date: 20140414
  Serious: Yes (Other)
  Sender: FDA-Public Use
  Company Number: AUR-APL-2013-04658

PATIENT
  Sex: Female

DRUGS (7)
  1. AMLODIPINE [Suspect]
     Indication: HYPERTENSION
     Route: 048
     Dates: end: 20130515
  2. FENOFIBRATE (FEBOFIBRATE) [Concomitant]
  3. GLIBENCLAIDE (GLIBENCLAMIDE) [Concomitant]
  4. METFORMIN (METFORMIN) [Concomitant]
  5. RAMIPRIL (RAMIPRIL) [Concomitant]
  6. SIMVASTATIN (SIMVASTATIN) [Concomitant]
  7. SITAGLIPTIN (SITAGLIPTIN) [Concomitant]

REACTIONS (4)
  - Gingival hypertrophy [None]
  - Loose tooth [None]
  - Gingival swelling [None]
  - Discomfort [None]
